FAERS Safety Report 18176906 (Version 2)
Quarter: 2020Q3

REPORT INFORMATION
  Report Type: Spontaneous
  Country: RU (occurrence: RU)
  Receive Date: 20200820
  Receipt Date: 20200831
  Transmission Date: 20201103
  Serious: Yes (Other)
  Sender: FDA-Public Use
  Company Number: NVSC2020RU228792

PATIENT
  Age: 4 Year
  Sex: Male

DRUGS (2)
  1. METHOTREXATE. [Suspect]
     Active Substance: METHOTREXATE
     Indication: BURKITT^S LYMPHOMA
     Dosage: UNK
     Route: 065
     Dates: start: 20190815
  2. METHOTREXATE. [Suspect]
     Active Substance: METHOTREXATE
     Dosage: 2500 MG/M2 IN 24 HOUR
     Route: 042
     Dates: end: 20190819

REACTIONS (4)
  - Pneumonia [Unknown]
  - Mucosal inflammation [Unknown]
  - Aplasia pure red cell [Unknown]
  - Gastrointestinal hypomotility [Unknown]
